FAERS Safety Report 13860225 (Version 2)
Quarter: 2017Q3

REPORT INFORMATION
  Report Type: Spontaneous
  Country: US (occurrence: US)
  Receive Date: 20170811
  Receipt Date: 20170921
  Transmission Date: 20171127
  Serious: No
  Sender: FDA-Public Use
  Company Number: US-ASTRAZENECA-2009BM03358

PATIENT
  Age: 20372 Day
  Sex: Female

DRUGS (6)
  1. BYETTA [Suspect]
     Active Substance: EXENATIDE
     Indication: TYPE 2 DIABETES MELLITUS
     Dosage: 10 ???G, BID
     Route: 058
     Dates: start: 200902
  2. EXENATIDE 5MCG PEN, DISPOSABLE DEVICE [Concomitant]
     Active Substance: EXENATIDE
  3. BYDUREON [Suspect]
     Active Substance: EXENATIDE
     Indication: TYPE 2 DIABETES MELLITUS
     Route: 058
     Dates: start: 20170126
  4. METFORMIN [Concomitant]
     Active Substance: METFORMIN HYDROCHLORIDE
     Dosage: UNK
  5. BYETTA [Suspect]
     Active Substance: EXENATIDE
     Indication: TYPE 2 DIABETES MELLITUS
     Dosage: 5 ???G, BID
     Route: 058
     Dates: start: 200901, end: 200902
  6. TOUJEO [Concomitant]
     Active Substance: INSULIN GLARGINE

REACTIONS (6)
  - Blood glucose increased [Unknown]
  - Product quality issue [Unknown]
  - Intentional product misuse [Unknown]
  - Drug ineffective [Not Recovered/Not Resolved]
  - Decreased appetite [Unknown]
  - Malaise [Not Recovered/Not Resolved]

NARRATIVE: CASE EVENT DATE: 2009
